FAERS Safety Report 7280871-4 (Version None)
Quarter: 2010Q4

REPORT INFORMATION
  Report Type: 
  Country: None (occurrence: None)
  Receive Date: 20101221
  Receipt Date: 20091102
  Transmission Date: 20110411
  Serious: Yes (Hospitalization)
  Sender: FDA-Public Use
  Company Number: WAES 0911USA00889

PATIENT
  Age: 76 Year
  Sex: Female

DRUGS (1)
  1. JANUVIA [Suspect]
     Dosage: PO, 100 MG/PO
     Route: 048
     Dates: start: 20060101, end: 20060101

REACTIONS (1)
  - PANCREATITIS ACUTE [None]
